FAERS Safety Report 26125439 (Version 1)
Quarter: 2025Q4

REPORT INFORMATION
  Report Type: Spontaneous
  Country: KR (occurrence: KR)
  Receive Date: 20251205
  Receipt Date: 20251205
  Transmission Date: 20260117
  Serious: Yes (Other)
  Sender: NOVARTIS
  Company Number: KR-002147023-NVSC2025KR184362

PATIENT
  Age: 54 Year
  Sex: Male
  Weight: 54 kg

DRUGS (2)
  1. IMATINIB [Suspect]
     Active Substance: IMATINIB
     Indication: Chronic myeloid leukaemia
     Dosage: 400 MG
     Route: 065
     Dates: start: 20240430, end: 20250509
  2. IMATINIB [Suspect]
     Active Substance: IMATINIB
     Dosage: 200 MG, QD
     Route: 065
     Dates: start: 20250701, end: 20250825

REACTIONS (6)
  - Thrombocytopenia [Unknown]
  - Glaucoma [Unknown]
  - Pleural effusion [Unknown]
  - Intraocular pressure increased [Unknown]
  - Vision blurred [Unknown]
  - Therapeutic response decreased [Unknown]

NARRATIVE: CASE EVENT DATE: 20250101
